FAERS Safety Report 10461310 (Version 2)
Quarter: 2014Q3

REPORT INFORMATION
  Report Type: Spontaneous
  Country: IN (occurrence: IN)
  Receive Date: 20140918
  Receipt Date: 20140918
  Transmission Date: 20150326
  Serious: Yes (Life-Threatening)
  Sender: FDA-Public Use
  Company Number: PHHY2013IN088818

PATIENT
  Age: 64 Year
  Sex: Male

DRUGS (1)
  1. VOLTAREN [Suspect]
     Active Substance: DICLOFENAC SODIUM
     Indication: PAIN
     Dosage: 50 MG, QD
     Route: 030

REACTIONS (13)
  - Anaphylactic reaction [Recovered/Resolved]
  - Pruritus [Recovered/Resolved]
  - Blood pressure decreased [Recovered/Resolved]
  - Electrocardiogram ST segment elevation [Recovered/Resolved]
  - Tryptase increased [Recovered/Resolved]
  - Acute myocardial infarction [Recovered/Resolved]
  - Rash [Recovered/Resolved]
  - Kounis syndrome [Recovered/Resolved]
  - Heart rate increased [Recovered/Resolved]
  - Chest pain [Recovered/Resolved]
  - Troponin T increased [Recovered/Resolved]
  - Injection site erythema [Recovered/Resolved]
  - Erythema [Recovered/Resolved]
